FAERS Safety Report 21179534 (Version 1)
Quarter: 2022Q3

REPORT INFORMATION
  Report Type: Spontaneous
  Country: US (occurrence: None)
  Receive Date: 20220805
  Receipt Date: 20220805
  Transmission Date: 20221027
  Serious: No
  Sender: FDA-Public Use
  Company Number: None

PATIENT
  Age: 68 Year
  Sex: Male
  Weight: 102.51 kg

DRUGS (5)
  1. LEVOTHYROXINE [Suspect]
     Active Substance: LEVOTHYROXINE
     Indication: Hypothyroidism
     Dosage: FREQUENCY : DAILY;?
     Route: 048
     Dates: start: 20220706
  2. CHLORTHALIDONE [Concomitant]
  3. LIOTHYRONE [Concomitant]
  4. OLMESARTAN [Concomitant]
  5. TESTOSTERONE CYP [Concomitant]

REACTIONS (2)
  - Product substitution issue [None]
  - Depressed mood [None]

NARRATIVE: CASE EVENT DATE: 20220707
